FAERS Safety Report 9508351 (Version 2)
Quarter: 2013Q3

REPORT INFORMATION
  Report Type: Spontaneous
  Country: US (occurrence: US)
  Receive Date: 20130909
  Receipt Date: 20130920
  Transmission Date: 20140515
  Serious: No
  Sender: FDA-Public Use
  Company Number: US-PFIZER INC-2013254409

PATIENT
  Age: 17 Year
  Sex: Male

DRUGS (2)
  1. MOTRIN [Suspect]
     Dosage: UNK
     Route: 048
  2. ACCUTANE [Suspect]
     Dosage: 40 MG, UNK
     Route: 048
     Dates: start: 20121121

REACTIONS (2)
  - Overdose [Unknown]
  - Liver function test abnormal [Recovered/Resolved]
